FAERS Safety Report 26058264 (Version 1)
Quarter: 2025Q4

REPORT INFORMATION
  Report Type: Spontaneous
  Country: CA (occurrence: CA)
  Receive Date: 20251118
  Receipt Date: 20251118
  Transmission Date: 20260118
  Serious: Yes (Death, Life-Threatening, Hospitalization, Disabling, Congenital Anomaly, Other)
  Sender: Haleon PLC
  Company Number: CA-HALEON-2274450

PATIENT
  Age: 43 Year
  Sex: Female
  Weight: 96 kg

DRUGS (123)
  1. FLONASE ALLERGY RELIEF [Suspect]
     Active Substance: FLUTICASONE PROPIONATE
     Indication: Product used for unknown indication
     Dosage: ROUTE: UNKNOWN
  2. DICLOFENAC SODIUM [Suspect]
     Active Substance: DICLOFENAC SODIUM
     Indication: Product used for unknown indication
     Dosage: ROUTE: UNKNOWN
  3. DICLOFENAC [Suspect]
     Active Substance: DICLOFENAC
     Indication: Product used for unknown indication
     Dosage: ROUTE: UNKNOWN
  4. DICLOFENAC [Suspect]
     Active Substance: DICLOFENAC
     Dosage: ROUTE: UNKNOWN
  5. ALENDRONIC ACID [Suspect]
     Active Substance: ALENDRONIC ACID
     Indication: Rheumatoid arthritis
  6. BERINERT [Suspect]
     Active Substance: HUMAN C1-ESTERASE INHIBITOR
     Indication: Product used for unknown indication
     Dosage: ROUTE: UNKNOWN
  7. CANDESARTAN [Suspect]
     Active Substance: CANDESARTAN
     Indication: Rheumatoid arthritis
  8. CANDESARTAN [Suspect]
     Active Substance: CANDESARTAN
     Indication: Migraine
  9. CHOLECALCIFEROL [Suspect]
     Active Substance: CHOLECALCIFEROL
     Indication: Rheumatoid arthritis
     Dosage: ROUTE: UNKNOWN
  10. CHOLECALCIFEROL [Suspect]
     Active Substance: CHOLECALCIFEROL
     Dosage: ROUTE: UNKNOWN
  11. CHOLECALCIFEROL [Suspect]
     Active Substance: CHOLECALCIFEROL
  12. COSENTYX [Suspect]
     Active Substance: SECUKINUMAB
     Indication: Rheumatoid arthritis
     Dosage: ROUTE: UNKNOWN
  13. COSENTYX [Suspect]
     Active Substance: SECUKINUMAB
     Indication: Psoriatic arthropathy
  14. CYCLOBENZAPRINE [Suspect]
     Active Substance: CYCLOBENZAPRINE
     Indication: Product used for unknown indication
     Dosage: ROUTE: UNKNOWN
  15. ERELZI [Suspect]
     Active Substance: ETANERCEPT-SZZS
     Indication: Rheumatoid arthritis
     Dosage: DOSAGE FORM: NOT SPECIFIED, ROUTE: UNKNOWN
  16. ERELZI [Suspect]
     Active Substance: ETANERCEPT-SZZS
     Indication: Rheumatoid arthritis
     Dosage: DOSAGE FORM: SOLUTION FOR INJECTION
  17. ERELZI [Suspect]
     Active Substance: ETANERCEPT-SZZS
     Dosage: DOSAGE FORM: SOLUTION FOR INJECTION, ROUTE: UNKNOWN
  18. ERELZI [Suspect]
     Active Substance: ETANERCEPT-SZZS
     Dosage: DOSAGE FORM: SOLUTION FOR INJECTION, ROUTE: UNKNOWN
  19. ERELZI [Suspect]
     Active Substance: ETANERCEPT-SZZS
     Dosage: DOSAGE FORM: SOLUTION FOR INJECTION
  20. ERELZI [Suspect]
     Active Substance: ETANERCEPT-SZZS
  21. ERELZI [Suspect]
     Active Substance: ETANERCEPT-SZZS
  22. ERELZI [Suspect]
     Active Substance: ETANERCEPT-SZZS
  23. FINACEA [Suspect]
     Active Substance: AZELAIC ACID
     Indication: Product used for unknown indication
     Dosage: ROUTE: UNKNOWN
  24. FLUMETHASONE PIVALATE [Suspect]
     Active Substance: FLUMETHASONE PIVALATE
     Indication: Rheumatoid arthritis
  25. FLUMETHASONE PIVALATE [Suspect]
     Active Substance: FLUMETHASONE PIVALATE
  26. SULFATHIAZOLE [Suspect]
     Active Substance: SULFATHIAZOLE
     Indication: Product used for unknown indication
     Dosage: DOSE FORM: SPRAY (NOT INHALATION)
  27. TRAMADOL HYDROCHLORIDE [Suspect]
     Active Substance: TRAMADOL HYDROCHLORIDE
     Indication: Migraine
     Dosage: ROUTE: UNKNOWN
  28. VITAMIN C [Suspect]
     Active Substance: ASCORBIC ACID
     Indication: Product used for unknown indication
  29. LYSINE HYDROCHLORIDE [Suspect]
     Active Substance: LYSINE HYDROCHLORIDE
     Indication: Product used for unknown indication
     Dosage: ROUTE: UNKNOWN
  30. MAGNESIUM CHLORIDE ANHYDROUS [Suspect]
     Active Substance: MAGNESIUM CHLORIDE ANHYDROUS
     Indication: Product used for unknown indication
  31. MAGNESIUM CHLORIDE ANHYDROUS [Suspect]
     Active Substance: MAGNESIUM CHLORIDE ANHYDROUS
  32. MAGNESIUM CITRATE [Suspect]
     Active Substance: MAGNESIUM CITRATE
     Indication: Product used for unknown indication
  33. METFORMIN HYDROCHLORIDE [Suspect]
     Active Substance: METFORMIN HYDROCHLORIDE
     Indication: Migraine
     Dosage: ROUTE: UNK
  34. METHOTREXATE [Suspect]
     Active Substance: METHOTREXATE
     Indication: Rheumatoid arthritis
  35. METHOTREXATE [Suspect]
     Active Substance: METHOTREXATE
  36. METHOTREXATE [Suspect]
     Active Substance: METHOTREXATE
     Dosage: ROUTE: UNKNOWN
  37. METHOTREXATE [Suspect]
     Active Substance: METHOTREXATE
  38. METHOTREXATE [Suspect]
     Active Substance: METHOTREXATE
     Dosage: ROUTE: UNKNOWN
  39. METHOTREXATE [Suspect]
     Active Substance: METHOTREXATE
  40. METHOTREXATE [Suspect]
     Active Substance: METHOTREXATE
  41. METHYLCOBALAMIN [Suspect]
     Active Substance: METHYLCOBALAMIN
     Indication: Product used for unknown indication
  42. METHYLPREDNISOLONE [Suspect]
     Active Substance: METHYLPREDNISOLONE
     Indication: Product used for unknown indication
  43. METHYLPREDNISOLONE SODIUM SUCCINATE [Suspect]
     Active Substance: METHYLPREDNISOLONE SODIUM SUCCINATE
     Indication: Product used for unknown indication
  44. MINOCYCLINE HYDROCHLORIDE [Suspect]
     Active Substance: MINOCYCLINE HYDROCHLORIDE
     Indication: Product used for unknown indication
  45. MYRBETRIQ [Suspect]
     Active Substance: MIRABEGRON
     Indication: Product used for unknown indication
     Dosage: ROUTE: TABLET (EXTENDED- RELEASE), ROUTE UNK
  46. NAPROXEN SODIUM [Suspect]
     Active Substance: NAPROXEN SODIUM
     Indication: Product used for unknown indication
     Dosage: ROUTE: UNKNOWN
  47. NUCALA [Suspect]
     Active Substance: MEPOLIZUMAB
     Indication: Product used for unknown indication
     Dosage: ROUTE: UNKNOWN
  48. ORENCIA [Suspect]
     Active Substance: ABATACEPT
     Indication: Rheumatoid arthritis
  49. ORENCIA [Suspect]
     Active Substance: ABATACEPT
     Dosage: ROUTE: INTRAVENOUS BOLUS
  50. OXYCODONE [Suspect]
     Active Substance: OXYCODONE
     Indication: Product used for unknown indication
  51. PANTOPRAZOLE SODIUM [Suspect]
     Active Substance: PANTOPRAZOLE SODIUM
     Indication: Dyspepsia
     Dosage: ROUTE: UNKNOWN
  52. PANTOPRAZOLE SODIUM [Suspect]
     Active Substance: PANTOPRAZOLE SODIUM
     Dosage: ROUTE: UNKNOWN
  53. PANTOPRAZOLE SODIUM [Suspect]
     Active Substance: PANTOPRAZOLE SODIUM
     Dosage: ROUTE: UNKNOWN
  54. PANTOPRAZOLE SODIUM [Suspect]
     Active Substance: PANTOPRAZOLE SODIUM
  55. PHENYLEPHRINE HYDROCHLORIDE [Suspect]
     Active Substance: PHENYLEPHRINE HYDROCHLORIDE
     Indication: Rheumatoid arthritis
  56. PREDNISONE [Suspect]
     Active Substance: PREDNISONE
     Indication: Rheumatoid arthritis
  57. PSEUDOEPHEDRINE HYDROCHLORIDE [Suspect]
     Active Substance: PSEUDOEPHEDRINE HYDROCHLORIDE
     Indication: Rheumatoid arthritis
     Dosage: ROUTE: UNKNOWN
  58. PSEUDOEPHEDRINE HYDROCHLORIDE [Suspect]
     Active Substance: PSEUDOEPHEDRINE HYDROCHLORIDE
     Dosage: ROUTE: UNKNOWN
  59. PSEUDOEPHEDRINE HYDROCHLORIDE [Suspect]
     Active Substance: PSEUDOEPHEDRINE HYDROCHLORIDE
     Dosage: ROUTE: UNKNOWN
  60. RANITIDINE HYDROCHLORIDE [Suspect]
     Active Substance: RANITIDINE HYDROCHLORIDE
     Indication: Rheumatoid arthritis
  61. RITUXIMAB [Suspect]
     Active Substance: RITUXIMAB
     Dosage: ROUTE: INTRAVENOUS BOLUS
  62. DIETARY SUPPLEMENT\HERBALS [Suspect]
     Active Substance: DIETARY SUPPLEMENT\HERBALS
     Indication: Product used for unknown indication
     Dosage: DOSE FORM: DROPS ORAL
  63. DIETARY SUPPLEMENT\HERBALS [Suspect]
     Active Substance: DIETARY SUPPLEMENT\HERBALS
     Indication: Product used for unknown indication
     Dosage: ROUTE: UNKNOWN
  64. SULFASALAZINE [Suspect]
     Active Substance: SULFASALAZINE
     Indication: Product used for unknown indication
  65. CELECOXIB [Suspect]
     Active Substance: CELECOXIB
     Indication: Product used for unknown indication
  66. CELECOXIB [Suspect]
     Active Substance: CELECOXIB
  67. SIMPONI [Suspect]
     Active Substance: GOLIMUMAB
     Indication: Prostatic specific antigen
     Dosage: ROUTE: UNKNOWN
  68. SIMPONI [Suspect]
     Active Substance: GOLIMUMAB
     Indication: Prostatic specific antigen
     Dosage: DOSE FORM: SOLUTION SUBCUTANEOUS
  69. GOLD SODIUM THIOMALATE [Suspect]
     Active Substance: GOLD SODIUM THIOMALATE
     Indication: Product used for unknown indication
  70. SULFAMETHOXAZOLE [Suspect]
     Active Substance: SULFAMETHOXAZOLE
     Indication: Product used for unknown indication
  71. ADALIMUMAB [Suspect]
     Active Substance: ADALIMUMAB
     Indication: Rheumatoid arthritis
     Dosage: DOSAGE FORM: SOLUTION SUBCUTANEOUS
  72. AIMOVIG [Suspect]
     Active Substance: ERENUMAB-AOOE
     Indication: Migraine
     Dosage: SOLUTION, ROUTE: UNKNOWN
  73. AZULFIDINE [Suspect]
     Active Substance: SULFASALAZINE
     Indication: Product used for unknown indication
     Dosage: ROUTE: UNKNOWN
  74. BUPRENORPHINE HYDROCHLORIDE [Suspect]
     Active Substance: BUPRENORPHINE HYDROCHLORIDE
     Indication: Product used for unknown indication
     Dosage: ROUTE: UNKNOWN
  75. CALCIUM ASCORBATE [Suspect]
     Active Substance: CALCIUM ASCORBATE
     Indication: Product used for unknown indication
     Dosage: ROUTE: UNKNOWN
  76. ERGOCALCIFEROL [Suspect]
     Active Substance: ERGOCALCIFEROL
     Indication: Rheumatoid arthritis
     Dosage: ROUTE: UNKNOWN
  77. GOLD SODIUM THIOMALATE [Suspect]
     Active Substance: GOLD SODIUM THIOMALATE
     Indication: Product used for unknown indication
  78. LAMOTRIGINE [Suspect]
     Active Substance: LAMOTRIGINE
     Indication: Product used for unknown indication
  79. LAMOTRIGINE [Suspect]
     Active Substance: LAMOTRIGINE
  80. LAMOTRIGINE [Suspect]
     Active Substance: LAMOTRIGINE
  81. LEFLUNOMIDE [Suspect]
     Active Substance: LEFLUNOMIDE
     Indication: Rheumatoid arthritis
     Dosage: ROUTE: UNK
  82. LEFLUNOMIDE [Suspect]
     Active Substance: LEFLUNOMIDE
     Dosage: ROUTE: UNK
  83. LEVOMILNACIPRAN [Suspect]
     Active Substance: LEVOMILNACIPRAN
     Indication: Product used for unknown indication
  84. TOFACITINIB [Suspect]
     Active Substance: TOFACITINIB
     Indication: Rheumatoid arthritis
  85. TOPAMAX [Suspect]
     Active Substance: TOPIRAMATE
     Indication: Migraine
  86. TOPAMAX [Suspect]
     Active Substance: TOPIRAMATE
     Dosage: ROUTE: UNKNOWN
  87. TOPAMAX [Suspect]
     Active Substance: TOPIRAMATE
     Dosage: ROUTE: UNKNOWN
  88. TRIAMCINOLONE ACETONIDE [Suspect]
     Active Substance: TRIAMCINOLONE ACETONIDE
     Indication: Rheumatoid arthritis
     Dosage: DOSE FORM: SUSPENSION INTRA- ARTICULAR
  89. XELJANZ [Suspect]
     Active Substance: TOFACITINIB CITRATE
     Indication: Rheumatoid arthritis
     Dosage: ROUTE: UNKNOWN
  90. XELJANZ [Suspect]
     Active Substance: TOFACITINIB CITRATE
     Dosage: ROUTE: UNKNOWN
  91. MYRBETRIQ [Suspect]
     Active Substance: MIRABEGRON
     Indication: Product used for unknown indication
  92. OTEZLA [Suspect]
     Active Substance: APREMILAST
     Indication: Rheumatoid arthritis
     Dosage: ROUTE: UNKNOWN
  93. OTEZLA [Suspect]
     Active Substance: APREMILAST
     Indication: Psoriasis
  94. OXYCODONE TEREPHTHALATE [Suspect]
     Active Substance: OXYCODONE TEREPHTHALATE
     Indication: Product used for unknown indication
  95. PHTHALYLSULFATHIAZOLE [Suspect]
     Active Substance: PHTHALYLSULFATHIAZOLE
     Indication: Rheumatoid arthritis
  96. PHTHALYLSULFATHIAZOLE [Suspect]
     Active Substance: PHTHALYLSULFATHIAZOLE
  97. PHTHALYLSULFATHIAZOLE [Suspect]
     Active Substance: PHTHALYLSULFATHIAZOLE
     Dosage: ROUTE: UNK
  98. PHTHALYLSULFATHIAZOLE [Suspect]
     Active Substance: PHTHALYLSULFATHIAZOLE
  99. PHTHALYLSULFATHIAZOLE [Suspect]
     Active Substance: PHTHALYLSULFATHIAZOLE
  100. PYRIDOXINE HYDROCHLORIDE [Suspect]
     Active Substance: PYRIDOXINE HYDROCHLORIDE
     Indication: Rheumatoid arthritis
  101. RAMIPRIL [Suspect]
     Active Substance: RAMIPRIL
     Indication: Product used for unknown indication
  102. REMICADE [Suspect]
     Active Substance: INFLIXIMAB
     Indication: Rheumatoid arthritis
     Dosage: DOSE FORM: POWDER FOR SOLUTION, ROUTE: INTRAVENOUS BOLUS
  103. SULFASALAZINE [Suspect]
     Active Substance: SULFASALAZINE
     Indication: Rheumatoid arthritis
  104. SULFASALAZINE [Suspect]
     Active Substance: SULFASALAZINE
  105. SULFASALAZINE [Suspect]
     Active Substance: SULFASALAZINE
  106. SULFASALAZINE [Suspect]
     Active Substance: SULFASALAZINE
  107. SULFASALAZINE [Suspect]
     Active Substance: SULFASALAZINE
  108. SULFASALAZINE [Suspect]
     Active Substance: SULFASALAZINE
  109. SULFASALAZINE [Suspect]
     Active Substance: SULFASALAZINE
  110. SULFASALAZINE [Suspect]
     Active Substance: SULFASALAZINE
  111. SULFASALAZINE [Suspect]
     Active Substance: SULFASALAZINE
  112. SULFASALAZINE [Suspect]
     Active Substance: SULFASALAZINE
  113. SULFASALAZINE [Suspect]
     Active Substance: SULFASALAZINE
  114. NAPROXEN [Suspect]
     Active Substance: NAPROXEN
     Indication: Product used for unknown indication
  115. PANTOPRAZOLE SODIUM [Concomitant]
     Active Substance: PANTOPRAZOLE SODIUM
     Indication: Product used for unknown indication
  116. RISEDRONATE SODIUM [Concomitant]
     Active Substance: RISEDRONATE SODIUM
     Indication: Product used for unknown indication
  117. FISH OIL [Concomitant]
     Active Substance: FISH OIL
     Indication: Product used for unknown indication
  118. LISINOPRIL [Concomitant]
     Active Substance: LISINOPRIL
     Indication: Product used for unknown indication
  119. LORAZEPAM [Concomitant]
     Active Substance: LORAZEPAM
     Indication: Product used for unknown indication
  120. TYLENOL [Concomitant]
     Active Substance: ACETAMINOPHEN
     Indication: Product used for unknown indication
  121. VENTOLIN [Concomitant]
     Active Substance: ALBUTEROL SULFATE
     Indication: Product used for unknown indication
  122. ZOPICLONE [Concomitant]
     Active Substance: ZOPICLONE
     Indication: Product used for unknown indication
     Dosage: ROUTE: UNKNOWN
  123. QUETIAPINE FUMARATE [Concomitant]
     Active Substance: QUETIAPINE FUMARATE
     Indication: Product used for unknown indication

REACTIONS (61)
  - Breast cancer stage III [Fatal]
  - Osteoporosis [Fatal]
  - Maternal exposure before pregnancy [Fatal]
  - Exposure during pregnancy [Fatal]
  - Pyrexia [Fatal]
  - Retinitis [Fatal]
  - Lung disorder [Fatal]
  - Night sweats [Fatal]
  - Dislocation of vertebra [Fatal]
  - Joint swelling [Fatal]
  - Irritable bowel syndrome [Fatal]
  - Abdominal discomfort [Fatal]
  - Pain [Fatal]
  - Taste disorder [Fatal]
  - Gastrooesophageal reflux disease [Fatal]
  - Feeling hot [Fatal]
  - Vomiting [Fatal]
  - Abdominal pain upper [Fatal]
  - Migraine [Fatal]
  - Paraesthesia [Fatal]
  - Psoriatic arthropathy [Fatal]
  - Wound [Fatal]
  - Blepharospasm [Fatal]
  - Depression [Fatal]
  - Headache [Fatal]
  - Dizziness [Fatal]
  - Decreased appetite [Fatal]
  - Contraindicated product administered [Fatal]
  - Back injury [Fatal]
  - Red blood cell sedimentation rate increased [Fatal]
  - Frequent bowel movements [Fatal]
  - Arthralgia [Fatal]
  - Weight increased [Fatal]
  - Peripheral venous disease [Fatal]
  - Impaired healing [Fatal]
  - General physical health deterioration [Fatal]
  - Joint range of motion decreased [Fatal]
  - Bursitis [Fatal]
  - Exostosis [Fatal]
  - Visual impairment [Fatal]
  - Muscle spasms [Fatal]
  - Dry mouth [Fatal]
  - Product quality issue [Fatal]
  - Rash [Fatal]
  - Blister [Fatal]
  - Lupus vulgaris [Fatal]
  - Hepatic enzyme increased [Fatal]
  - Folliculitis [Fatal]
  - Peripheral swelling [Fatal]
  - Asthenia [Fatal]
  - Anti-cyclic citrullinated peptide antibody positive [Fatal]
  - Infusion related reaction [Fatal]
  - Hypocholesterolaemia [Fatal]
  - Synovitis [Fatal]
  - Blood cholesterol increased [Fatal]
  - Diarrhoea [Fatal]
  - Pericarditis [Fatal]
  - Musculoskeletal pain [Fatal]
  - C-reactive protein increased [Fatal]
  - Glossodynia [Fatal]
  - Memory impairment [Fatal]
